FAERS Safety Report 6129699-9 (Version None)
Quarter: 2009Q1

REPORT INFORMATION
  Report Type: 
  Country: None (occurrence: None)
  Receive Date: 20090323
  Receipt Date: 20090323
  Transmission Date: 20090719
  Serious: Yes (Hospitalization)
  Sender: FDA-Public Use
  Company Number: None

PATIENT
  Age: 16 Year
  Sex: Male
  Weight: 82.7 kg

DRUGS (2)
  1. DESFLURANE INHALED GAS [Suspect]
     Indication: INDUCTION OF ANAESTHESIA
     Dosage: UNKNOWN
     Dates: start: 20090107, end: 20090107
  2. PROPOFOL [Suspect]
     Indication: INDUCTION OF ANAESTHESIA
     Dosage: UNKNOWN
     Dates: start: 20090107, end: 20090107

REACTIONS (4)
  - CHOLESTASIS [None]
  - HEPATITIS ACUTE [None]
  - POST PROCEDURAL COMPLICATION [None]
  - RECTAL HAEMORRHAGE [None]
